FAERS Safety Report 6684792-7 (Version None)
Quarter: 2010Q2

REPORT INFORMATION
  Report Type: 
  Country: None (occurrence: None)
  Receive Date: 20100416
  Receipt Date: 20100413
  Transmission Date: 20101027
  Serious: Yes (Hospitalization)
  Sender: FDA-Public Use
  Company Number: CA-ELI_LILLY_AND_COMPANY-CA201004003311

PATIENT
  Age: 58 Year
  Sex: Male

DRUGS (3)
  1. HUMALOG [Suspect]
     Dosage: UNK, UNK
     Route: 058
     Dates: start: 20091101
  2. LIPITOR [Concomitant]
     Dosage: 20 MG, DAILY (1/D)
  3. RAMIPRIL [Concomitant]
     Dosage: 10 MG, DAILY (1/D)

REACTIONS (3)
  - BLOOD GLUCOSE ABNORMAL [None]
  - DIABETIC KETOACIDOSIS [None]
  - DRUG INEFFECTIVE [None]
